FAERS Safety Report 6613843-0 (Version None)
Quarter: 2010Q1

REPORT INFORMATION
  Report Type: 
  Country: None (occurrence: None)
  Receive Date: 20100225
  Receipt Date: 20100211
  Transmission Date: 20100710
  Serious: Yes (Death, Hospitalization)
  Sender: FDA-Public Use
  Company Number: 511508

PATIENT
  Age: 54 Year
  Sex: Male

DRUGS (6)
  1. PROPOFOL [Suspect]
     Indication: ANAESTHESIA
     Dosage: INTRAVENOUS
     Route: 042
     Dates: start: 20080905, end: 20080905
  2. CORDARONE [Suspect]
     Indication: ATRIAL FIBRILLATION
     Dosage: INTRAVENOUS
     Route: 042
     Dates: start: 20080904, end: 20080904
  3. HALOPERIDOL [Concomitant]
  4. DIAZEPAM [Concomitant]
  5. (CELOCURIN) [Concomitant]
  6. (RAPIFEN /00676302/) [Concomitant]

REACTIONS (14)
  - AGITATION [None]
  - ANXIETY [None]
  - ARTERIOSCLEROSIS [None]
  - BRADYCARDIA [None]
  - CARDIAC ARREST [None]
  - DRUG EFFECT DECREASED [None]
  - DRUG INTERACTION [None]
  - HEPATIC STEATOSIS [None]
  - HYPOTENSION [None]
  - LEFT VENTRICULAR HYPERTROPHY [None]
  - PANCREATITIS ACUTE [None]
  - PANCREATITIS NECROTISING [None]
  - PULMONARY OEDEMA [None]
  - RESTLESSNESS [None]
